FAERS Safety Report 4823648-9 (Version None)
Quarter: 2005Q4

REPORT INFORMATION
  Report Type: 
  Country: None (occurrence: None)
  Receive Date: 20051109
  Receipt Date: 20051031
  Transmission Date: 20060501
  Serious: Yes (Hospitalization)
  Sender: FDA-Public Use
  Company Number: FR-GLAXOSMITHKLINE-B0398761A

PATIENT
  Age: 18 Month
  Sex: Male

DRUGS (1)
  1. AUGMENTIN '125' [Suspect]
     Indication: RHINITIS
     Dosage: 1UNIT THREE TIMES PER DAY
     Route: 048
     Dates: start: 20050909, end: 20050914

REACTIONS (5)
  - CANDIDIASIS [None]
  - LYMPHADENOPATHY [None]
  - NEUTROPENIA [None]
  - PYREXIA [None]
  - URTICARIA [None]
